FAERS Safety Report 14103878 (Version 3)
Quarter: 2018Q2

REPORT INFORMATION
  Report Type: Spontaneous
  Country: DE (occurrence: DE)
  Receive Date: 20171018
  Receipt Date: 20180419
  Transmission Date: 20180711
  Serious: Yes (Other)
  Sender: FDA-Public Use
  Company Number: PHHY2017DE150815

PATIENT
  Age: 54 Year
  Sex: Female

DRUGS (1)
  1. GILENYA [Suspect]
     Active Substance: FINGOLIMOD HYDROCHLORIDE
     Indication: MULTIPLE SCLEROSIS
     Dosage: 0.5 MG, QD
     Route: 048
     Dates: start: 201503, end: 201709

REACTIONS (3)
  - Lymphadenopathy [Unknown]
  - Lymphoma [Unknown]
  - Neuroendocrine carcinoma [Not Recovered/Not Resolved]

NARRATIVE: CASE EVENT DATE: 201709
